FAERS Safety Report 9697066 (Version 3)
Quarter: 2014Q2

REPORT INFORMATION
  Report Type: Spontaneous
  Country: US (occurrence: US)
  Receive Date: 20131120
  Receipt Date: 20140519
  Transmission Date: 20141212
  Serious: Yes (Hospitalization, Other)
  Sender: FDA-Public Use
  Company Number: US-AMGEN-USASP2013081191

PATIENT
  Age: 77 Year
  Sex: Male
  Weight: 83.9 kg

DRUGS (5)
  1. PROCRIT [Suspect]
     Indication: ANAEMIA
     Dosage: 10000 MG, EVERY WEEK
     Route: 065
  2. AMLODIPINE [Concomitant]
     Dosage: 10 MG, ONCE DAILY
     Dates: start: 200711
  3. LIPITOR [Concomitant]
     Indication: BLOOD CHOLESTEROL ABNORMAL
     Dosage: 20 MG, ONCE DAILY
     Dates: start: 200803
  4. OMEPRAZOLE [Concomitant]
     Indication: GASTROOESOPHAGEAL REFLUX DISEASE
     Dosage: 20 MG, ONCE DAILY
  5. TERAZOSIN [Concomitant]
     Dosage: 5 MG, ONCE DAILY

REACTIONS (3)
  - Haemoglobin decreased [Recovered/Resolved]
  - Drug ineffective [Recovered/Resolved]
  - Frustration [Not Recovered/Not Resolved]
